FAERS Safety Report 21333768 (Version 1)
Quarter: 2022Q3

REPORT INFORMATION
  Report Type: Spontaneous
  Country: US (occurrence: US)
  Receive Date: 20220914
  Receipt Date: 20220914
  Transmission Date: 20221027
  Serious: Yes (Other)
  Sender: FDA-Public Use
  Company Number: US-PFIZER INC-202201152116

PATIENT
  Age: 60 Year
  Sex: Female
  Weight: 71.67 kg

DRUGS (2)
  1. IBRANCE [Suspect]
     Active Substance: PALBOCICLIB
     Indication: Breast cancer stage IV
     Dosage: 100 MG, CYCLIC (ONCE A DAY BY MOUTH FOR 14 DAYS)
     Route: 048
     Dates: end: 20220803
  2. IBRANCE [Suspect]
     Active Substance: PALBOCICLIB
     Dosage: 75 MG, CYCLIC (ONCE DAILY BY MOUTH 21 DAY ON AND THEN 7 DAYS OFF)
     Route: 048
     Dates: start: 202208

REACTIONS (8)
  - Neutropenia [Unknown]
  - White blood cell count decreased [Recovering/Resolving]
  - Animal bite [Unknown]
  - Skin exfoliation [Recovering/Resolving]
  - Rash [Recovered/Resolved]
  - Hypoaesthesia [Not Recovered/Not Resolved]
  - Burning sensation [Not Recovered/Not Resolved]
  - Dry skin [Unknown]

NARRATIVE: CASE EVENT DATE: 20220701
